FAERS Safety Report 6017964-5 (Version None)
Quarter: 2008Q4

REPORT INFORMATION
  Report Type: 
  Country: None (occurrence: None)
  Receive Date: 20081223
  Receipt Date: 20081223
  Transmission Date: 20090506
  Serious: Yes (Hospitalization)
  Sender: FDA-Public Use
  Company Number: A0761485A

PATIENT
  Age: 64 Year
  Sex: Male
  Weight: 102.3 kg

DRUGS (3)
  1. ALLI [Suspect]
     Route: 048
     Dates: start: 20080427, end: 20080512
  2. BLOOD PRESSURE MEDICATION [Concomitant]
  3. POLYPHARMACY [Concomitant]

REACTIONS (7)
  - ABDOMINAL ABSCESS [None]
  - ABDOMINAL PAIN UPPER [None]
  - EXPIRED DRUG ADMINISTERED [None]
  - INCISION SITE ABSCESS [None]
  - INCISION SITE COMPLICATION [None]
  - INCISION SITE PAIN [None]
  - RECTAL DISCHARGE [None]
